FAERS Safety Report 10268448 (Version 1)
Quarter: 2014Q2

REPORT INFORMATION
  Report Type: Spontaneous
  Country: US (occurrence: None)
  Receive Date: 20140625
  Receipt Date: 20140625
  Transmission Date: 20141212
  Serious: Yes (Death)
  Sender: FDA-Public Use
  Company Number: UNT-2014-002398

PATIENT
  Age: 67 Year
  Sex: Male
  Weight: 90.7 kg

DRUGS (4)
  1. REMODULIN (TREPROSTINIL SODIUM) INJECTION, 10 MG/ML [Suspect]
     Indication: COR PULMONALE CHRONIC
     Route: 058
     Dates: start: 20120929
  2. WARFARIN (WARFARIN) [Concomitant]
  3. ADCIRCA (TADALAFIL) [Concomitant]
  4. MACITENTAN (MACITENTAN) [Concomitant]

REACTIONS (1)
  - Death [None]
